FAERS Safety Report 17256342 (Version 10)
Quarter: 2023Q1

REPORT INFORMATION
  Report Type: Spontaneous
  Country: US (occurrence: US)
  Receive Date: 20200110
  Receipt Date: 20230214
  Transmission Date: 20230418
  Serious: Yes (Death, Other)
  Sender: FDA-Public Use
  Company Number: US-AMGEN-USASP2020002344

PATIENT

DRUGS (8)
  1. CARFILZOMIB [Suspect]
     Active Substance: CARFILZOMIB
     Indication: Plasma cell myeloma
     Dosage: 20/56 MG/M2 / 56 MG/M2 OR 70 MG/M2, QWK (EXCLUDING DAY 22 OF 28-DAY CYCLE)
     Route: 065
  2. SELINEXOR [Suspect]
     Active Substance: SELINEXOR
     Indication: Plasma cell myeloma
     Dosage: 80 MG OR 100 MG, QWK
     Route: 048
  3. DEXAMETHASONE [Suspect]
     Active Substance: DEXAMETHASONE
     Indication: Plasma cell myeloma
     Dosage: 40 MILLIGRAM, QWK
     Route: 065
  4. BORTEZOMIB [Suspect]
     Active Substance: BORTEZOMIB
     Indication: Plasma cell myeloma
     Dosage: UNK
     Route: 065
  5. LENALIDOMIDE [Suspect]
     Active Substance: LENALIDOMIDE
     Indication: Plasma cell myeloma
     Dosage: UNK
     Route: 065
  6. POMALIDOMIDE [Suspect]
     Active Substance: POMALIDOMIDE
     Indication: Plasma cell myeloma
     Dosage: UNK
     Route: 065
  7. DARATUMUMAB [Suspect]
     Active Substance: DARATUMUMAB
     Indication: Plasma cell myeloma
     Dosage: UNK
     Route: 065
  8. ELOTUZUMAB [Suspect]
     Active Substance: ELOTUZUMAB
     Indication: Plasma cell myeloma
     Route: 065

REACTIONS (50)
  - Death [Fatal]
  - Respiratory failure [Fatal]
  - Myocardial infarction [Fatal]
  - Pulmonary nocardiosis [Fatal]
  - Left ventricular failure [Unknown]
  - Pneumocystis jirovecii pneumonia [Unknown]
  - Plasma cell myeloma [Unknown]
  - Thrombocytopenia [Unknown]
  - Leukopenia [Unknown]
  - Pneumonia [Unknown]
  - Anaemia [Unknown]
  - Hyperglycaemia [Unknown]
  - Neutropenia [Unknown]
  - Cardiac failure [Unknown]
  - Neuropathy peripheral [Unknown]
  - Atrial fibrillation [Unknown]
  - Hyponatraemia [Unknown]
  - Pulmonary embolism [Unknown]
  - Acute kidney injury [Recovered/Resolved]
  - Hyperkalaemia [Unknown]
  - Lymphopenia [Unknown]
  - Ejection fraction [Unknown]
  - Hypophosphataemia [Unknown]
  - Hypercalcaemia [Unknown]
  - Hypokalaemia [Unknown]
  - Hypomagnesaemia [Unknown]
  - Hypocalcaemia [Unknown]
  - Bronchitis [Unknown]
  - Left ventricular dysfunction [Unknown]
  - Infection [Unknown]
  - Embolism [Unknown]
  - Therapy partial responder [Unknown]
  - Off label use [Unknown]
  - Weight decreased [Unknown]
  - Dysgeusia [Unknown]
  - Toxicity to various agents [Unknown]
  - Coronavirus infection [Unknown]
  - Vomiting [Unknown]
  - Fatigue [Unknown]
  - Decreased appetite [Unknown]
  - Insomnia [Unknown]
  - Nausea [Unknown]
  - Upper respiratory tract infection [Unknown]
  - Blood creatinine increased [Unknown]
  - Dyspnoea [Unknown]
  - Dizziness [Unknown]
  - Diarrhoea [Unknown]
  - Constipation [Unknown]
  - Vision blurred [Unknown]
  - Influenza [Unknown]
